FAERS Safety Report 5464076-5 (Version None)
Quarter: 2007Q3

REPORT INFORMATION
  Report Type: 
  Country: None (occurrence: None)
  Receive Date: 20070921
  Receipt Date: 20070914
  Transmission Date: 20080115
  Serious: Yes (Hospitalization)
  Sender: FDA-Public Use
  Company Number: US-BRISTOL-MYERS SQUIBB COMPANY-13914163

PATIENT
  Age: 42 Year
  Sex: Female

DRUGS (7)
  1. PACLITAXEL [Suspect]
     Indication: BREAST CANCER
     Dates: start: 20070426
  2. DOXORUBICIN HCL [Suspect]
     Indication: BREAST CANCER
     Dates: start: 20070426
  3. CYCLOPHOSPHAMIDE [Suspect]
     Indication: BREAST CANCER
     Dates: start: 20070426
  4. BEVACIZUMAB [Suspect]
     Indication: BREAST CANCER
     Dates: start: 20070426
  5. LYSINE [Concomitant]
     Dates: start: 20070420
  6. PEGFILGRASTIM [Concomitant]
  7. SUMATRIPTAN SUCCINATE [Concomitant]

REACTIONS (3)
  - HEADACHE [None]
  - HYPERTENSION [None]
  - VISION BLURRED [None]
